FAERS Safety Report 12840106 (Version 3)
Quarter: 2016Q4

REPORT INFORMATION
  Report Type: Spontaneous
  Country: PL (occurrence: PL)
  Receive Date: 20161012
  Receipt Date: 20161115
  Transmission Date: 20170207
  Serious: Yes (Hospitalization)
  Sender: FDA-Public Use
  Company Number: PL-SA-2016SA183475

PATIENT
  Age: 78 Year
  Sex: Male

DRUGS (3)
  1. DIGOXIN. [Suspect]
     Active Substance: DIGOXIN
     Indication: SUICIDE ATTEMPT
     Route: 048
  2. THEOPHYLLINE [Suspect]
     Active Substance: THEOPHYLLINE ANHYDROUS
     Indication: SUICIDE ATTEMPT
     Route: 065
  3. ZOLPIDEM [Suspect]
     Active Substance: ZOLPIDEM\ZOLPIDEM TARTRATE
     Indication: SUICIDE ATTEMPT
     Route: 048

REACTIONS (13)
  - Toxicity to various agents [Recovering/Resolving]
  - Restlessness [Recovering/Resolving]
  - Toxicity to various agents [Recovered/Resolved]
  - Ventricular extrasystoles [Recovering/Resolving]
  - Altered state of consciousness [Recovered/Resolved]
  - Intentional overdose [Recovering/Resolving]
  - Ventricular arrhythmia [Recovering/Resolving]
  - Blood pressure increased [Recovering/Resolving]
  - General physical health deterioration [Recovering/Resolving]
  - Aggression [Recovering/Resolving]
  - Suicide attempt [Recovering/Resolving]
  - Hypotension [Recovering/Resolving]
  - Tachycardia [Recovering/Resolving]
